FAERS Safety Report 4876197-6 (Version None)
Quarter: 2006Q1

REPORT INFORMATION
  Report Type: 
  Country: None (occurrence: None)
  Receive Date: 20060110
  Receipt Date: 20060104
  Transmission Date: 20060701
  Serious: Yes (Other)
  Sender: FDA-Public Use
  Company Number: US-JNJFOC-20060101061

PATIENT
  Sex: Male
  Weight: 83.01 kg

DRUGS (4)
  1. LEVAQUIN [Suspect]
     Indication: BACTERIAL INFECTION
     Route: 048
     Dates: start: 20051202, end: 20051206
  2. ACIPHEX [Concomitant]
     Route: 048
  3. PLAVIX [Concomitant]
     Route: 048
  4. HCTC [Concomitant]
     Indication: DIURETIC THERAPY
     Route: 048

REACTIONS (4)
  - INSOMNIA [None]
  - MUSCLE INJURY [None]
  - PAIN IN EXTREMITY [None]
  - SHOULDER PAIN [None]
